FAERS Safety Report 7851644-6 (Version None)
Quarter: 2011Q4

REPORT INFORMATION
  Report Type: 
  Country: None (occurrence: None)
  Receive Date: 20111026
  Receipt Date: 20111018
  Transmission Date: 20120403
  Serious: Yes (Hospitalization, Other)
  Sender: FDA-Public Use
  Company Number: PHHY2011BR92907

PATIENT
  Age: 89 Year
  Sex: Female

DRUGS (2)
  1. DIOVAN HCT [Suspect]
     Indication: HYPERTENSION
     Dosage: 160/12.5MG; 1 TIME ON MORNING
  2. DIOVAN HCT [Suspect]
     Dosage: 80/12.5MG; 1 TIME ON MORNING

REACTIONS (3)
  - BLOOD PRESSURE DECREASED [None]
  - DEMENTIA ALZHEIMER'S TYPE [None]
  - ISCHAEMIA [None]
